FAERS Safety Report 6637758-7 (Version None)
Quarter: 2010Q1

REPORT INFORMATION
  Report Type: 
  Country: None (occurrence: None)
  Receive Date: 20100315
  Receipt Date: 20100315
  Transmission Date: 20100710
  Serious: Yes (Hospitalization)
  Sender: FDA-Public Use
  Company Number: None

PATIENT
  Sex: Male
  Weight: 77.7 kg

DRUGS (5)
  1. CARBOPLATIN [Suspect]
     Dosage: 725 MG
     Dates: end: 20100223
  2. TAXOL [Suspect]
     Dosage: 400MG
     Dates: end: 20100223
  3. LOVENOX [Concomitant]
  4. PEPCID [Concomitant]
  5. ATENOLOL [Concomitant]

REACTIONS (1)
  - PERICARDIAL EFFUSION [None]
